FAERS Safety Report 21141206 (Version 1)
Quarter: 2022Q3

REPORT INFORMATION
  Report Type: Spontaneous
  Country: HR (occurrence: HR)
  Receive Date: 20220728
  Receipt Date: 20220728
  Transmission Date: 20221026
  Serious: Yes (Other)
  Sender: FDA-Public Use
  Company Number: None

PATIENT
  Age: 14 Year
  Sex: Female

DRUGS (3)
  1. ALPRAZOLAM [Suspect]
     Active Substance: ALPRAZOLAM
     Dosage: UNK, 1X/DAY
     Route: 048
     Dates: start: 20220630, end: 20220630
  2. QUETIAPINE [Suspect]
     Active Substance: QUETIAPINE
     Dosage: UNK UNK, 1X/DAY
     Dates: start: 20220630, end: 20220630
  3. DIAZEPAM [Suspect]
     Active Substance: DIAZEPAM
     Dosage: UNK, 1X/DAY
     Route: 048
     Dates: start: 20220630, end: 20220630

REACTIONS (3)
  - Intentional overdose [Unknown]
  - Suicide attempt [Unknown]
  - Confusional state [Unknown]

NARRATIVE: CASE EVENT DATE: 20220630
